FAERS Safety Report 20584687 (Version 2)
Quarter: 2022Q1

REPORT INFORMATION
  Report Type: Report from Study
  Country: BR (occurrence: BR)
  Receive Date: 20220311
  Receipt Date: 20220317
  Transmission Date: 20220423
  Serious: Yes (Hospitalization, Other)
  Sender: FDA-Public Use
  Company Number: BR-UCBSA-2022013203

PATIENT
  Age: 47 Year
  Sex: Female
  Weight: 88 kg

DRUGS (8)
  1. CERTOLIZUMAB PEGOL [Suspect]
     Active Substance: CERTOLIZUMAB PEGOL
     Indication: Rheumatoid arthritis
     Dosage: 400 MILLIGRAM, EV 30 DAYS
     Dates: start: 20210518
  2. PREDNISONE [Concomitant]
     Active Substance: PREDNISONE
     Indication: Rheumatoid arthritis
     Dosage: 5 MILLIGRAM, ONCE DAILY (QD)
     Route: 048
     Dates: start: 2018
  3. ANDOLBA [BENZETHONIUM CHLORIDE;BENZOCAINE;BENZOXIQUINE;MENTHOL] [Concomitant]
     Indication: Pain
     Dosage: UNK
     Route: 054
     Dates: start: 202101
  4. IBUPROFEN [Concomitant]
     Active Substance: IBUPROFEN
     Indication: Pain
     Dosage: 1 TAB EVERY 12HOURS
     Route: 048
  5. PROCTYL HC [Concomitant]
     Indication: Pain
     Dosage: UNK
     Route: 048
     Dates: start: 202109
  6. FLUOXETINE HYDROCHLORIDE [Concomitant]
     Active Substance: FLUOXETINE HYDROCHLORIDE
     Indication: Rheumatoid arthritis
     Dosage: 21 MILLIGRAM, ONCE DAILY (QD)
     Route: 048
     Dates: start: 202107
  7. ESCITALOPRAM [Concomitant]
     Active Substance: ESCITALOPRAM OXALATE
     Indication: Rheumatoid arthritis
     Dosage: 10 MILLIGRAM, ONCE DAILY (QD)
     Route: 048
     Dates: start: 202112
  8. METHOTREXATE [Concomitant]
     Active Substance: METHOTREXATE
     Indication: Rheumatoid arthritis
     Dosage: UNK
     Route: 048
     Dates: start: 2018

REACTIONS (6)
  - Haemorrhoids thrombosed [Recovering/Resolving]
  - Haemorrhoid operation [Recovering/Resolving]
  - Rheumatoid arthritis [Recovered/Resolved]
  - Inappropriate schedule of product administration [Unknown]
  - Vitamin D decreased [Unknown]
  - COVID-19 immunisation [Unknown]

NARRATIVE: CASE EVENT DATE: 20210901
